FAERS Safety Report 16663350 (Version 1)
Quarter: 2019Q3

REPORT INFORMATION
  Report Type: Report from Study
  Country: US (occurrence: US)
  Receive Date: 20190802
  Receipt Date: 20190802
  Transmission Date: 20191004
  Serious: No
  Sender: FDA-Public Use
  Company Number: US-EXELIXIS-CABO-19019914

PATIENT
  Age: 86 Year
  Sex: Male

DRUGS (17)
  1. OMEGA-3 ACIDS [Concomitant]
     Active Substance: OMEGA-3 FATTY ACIDS
  2. TEMAZEPAM. [Concomitant]
     Active Substance: TEMAZEPAM
  3. PROCRIT [Concomitant]
     Active Substance: ERYTHROPOIETIN
  4. TAMSULOSIN [Concomitant]
     Active Substance: TAMSULOSIN
  5. FERROUS SULFATE. [Concomitant]
     Active Substance: FERROUS SULFATE
  6. ASPIRIN. [Concomitant]
     Active Substance: ASPIRIN
  7. CETRIZINE [Concomitant]
     Active Substance: CETIRIZINE HYDROCHLORIDE
  8. VITAMIN D [Concomitant]
     Active Substance: VITAMIN D NOS
  9. CHONDROITIN SULFATE [Concomitant]
     Active Substance: CHONDROITIN SULFATE (BOVINE)
  10. PREDNISONE. [Concomitant]
     Active Substance: PREDNISONE
  11. OMEPRAZOLE. [Concomitant]
     Active Substance: OMEPRAZOLE
  12. ONDANSETRON [Concomitant]
     Active Substance: ONDANSETRON
  13. MEGESTROL [Concomitant]
     Active Substance: MEGESTROL
  14. CABOMETYX [Suspect]
     Active Substance: CABOZANTINIB S-MALATE
     Indication: RENAL CANCER
     Dosage: 40 MG, QD
     Route: 048
     Dates: start: 20190326, end: 20190502
  15. SOYA LECITHIN [Concomitant]
     Active Substance: DIETARY SUPPLEMENT
  16. PRAVASTATIN. [Concomitant]
     Active Substance: PRAVASTATIN
  17. AMLODIPINE [Concomitant]
     Active Substance: AMLODIPINE BESYLATE

REACTIONS (6)
  - Oropharyngeal pain [Not Recovered/Not Resolved]
  - Pruritus [Not Recovered/Not Resolved]
  - Glossodynia [Not Recovered/Not Resolved]
  - Aphthous ulcer [Not Recovered/Not Resolved]
  - Palmar-plantar erythrodysaesthesia syndrome [Recovering/Resolving]
  - Oral pain [Not Recovered/Not Resolved]

NARRATIVE: CASE EVENT DATE: 20190326
